FAERS Safety Report 9615996 (Version 2)
Quarter: 2013Q4

REPORT INFORMATION
  Report Type: Spontaneous
  Country: US (occurrence: US)
  Receive Date: 20131011
  Receipt Date: 20131011
  Transmission Date: 20140711
  Serious: No
  Sender: FDA-Public Use
  Company Number: US-PURDUE-USA-2013-0099838

PATIENT
  Age: 57 Year
  Sex: Female

DRUGS (2)
  1. BUTRANS [Suspect]
     Indication: FIBROMYALGIA
     Dosage: 10 MCG/HR, WEEKLY
     Route: 062
     Dates: start: 201212
  2. BUTRANS [Suspect]
     Dosage: 5 MCG/HR, 1/WEEK
     Route: 062

REACTIONS (5)
  - Cystitis interstitial [Not Recovered/Not Resolved]
  - Application site pruritus [Recovering/Resolving]
  - Application site rash [Recovering/Resolving]
  - Product adhesion issue [Unknown]
  - Product quality issue [Unknown]
